FAERS Safety Report 9207173 (Version 1)
Quarter: 2013Q1

REPORT INFORMATION
  Report Type: Spontaneous
  Country: US (occurrence: None)
  Receive Date: 20120718
  Receipt Date: 20120718
  Transmission Date: 20140127
  Serious: Yes (Other)
  Sender: FDA-Public Use
  Company Number: 163-50794-12050301

PATIENT
  Age: 66 Year
  Sex: Male
  Weight: 96.16 kg

DRUGS (7)
  1. VIDAZA [Suspect]
     Indication: MYELODYSPLASTIC SYNDROME
     Dosage: 5 DAYS ON 2 OFF 2 ON
     Route: 048
     Dates: start: 20120416, end: 20120420
  2. LISINOPRIL (LISINOPRIL) UNKNOWN [Concomitant]
  3. HCTZ (HYDROCHLOROTHIAZIDE) UNKNOWN [Concomitant]
  4. WELLBUTRIN (BUPROPION HYDROCHLORIDE) [Concomitant]
  5. CLONAZEPAM (CLONAZEPAM)UNKNOWN [Concomitant]
  6. MULTIVITAMINS (MULTIVITAMINS)UNKNOWN [Concomitant]
  7. ASA (ACETYLSALICYLIC ACID ) UNKNOWN [Concomitant]

REACTIONS (2)
  - Haemoglobin decreased [None]
  - Dyspnoea [None]
